FAERS Safety Report 7213141-0 (Version None)
Quarter: 2010Q4

REPORT INFORMATION
  Report Type: 
  Country: None (occurrence: None)
  Receive Date: 20101227
  Receipt Date: 20101207
  Transmission Date: 20110411
  Serious: Yes (Hospitalization, Other)
  Sender: FDA-Public Use
  Company Number: 20100570

PATIENT
  Age: 34 Year
  Sex: Female

DRUGS (2)
  1. EPINEPHRINE [Suspect]
     Indication: DRUG ABUSE
     Dosage: INJECTION NOS
  2. CARVEDILOL [Concomitant]

REACTIONS (16)
  - AGGRESSION [None]
  - BLOOD CREATINE PHOSPHOKINASE MB INCREASED [None]
  - DRUG ABUSE [None]
  - DRUG SCREEN POSITIVE [None]
  - ELECTROCARDIOGRAM QT PROLONGED [None]
  - EMOTIONAL DISORDER [None]
  - EPINEPHRINE INCREASED [None]
  - FALL [None]
  - HYPERGLYCAEMIA [None]
  - HYPOKALAEMIA [None]
  - MUNCHAUSEN'S SYNDROME [None]
  - SELF-MEDICATION [None]
  - SUPRAVENTRICULAR EXTRASYSTOLES [None]
  - TROPONIN I INCREASED [None]
  - UNRESPONSIVE TO STIMULI [None]
  - VENTRICULAR TACHYARRHYTHMIA [None]
